FAERS Safety Report 12864949 (Version 1)
Quarter: 2016Q4

REPORT INFORMATION
  Report Type: Other
  Country: CA (occurrence: CA)
  Receive Date: 20161020
  Receipt Date: 20161020
  Transmission Date: 20170207
  Serious: Yes (Other)
  Sender: FDA-Public Use
  Company Number: CA-APOTEX-2016AP012875

PATIENT
  Age: 41 Year
  Sex: Female

DRUGS (3)
  1. VISANNE [Suspect]
     Active Substance: DIENOGEST
     Indication: HAEMORRHAGE
     Dosage: 2 MG, QD
     Route: 048
  2. VISANNE [Suspect]
     Active Substance: DIENOGEST
     Indication: ENDOMETRIOSIS
  3. APO-AMOXI CLAV 875/125 [Suspect]
     Active Substance: AMOXICILLIN\CLAVULANATE POTASSIUM
     Indication: PNEUMONIA
     Dosage: 1 DF, BID
     Route: 048

REACTIONS (1)
  - Menorrhagia [Unknown]
